FAERS Safety Report 5452282-5 (Version None)
Quarter: 2007Q3

REPORT INFORMATION
  Report Type: 
  Country: None (occurrence: None)
  Receive Date: 20070912
  Receipt Date: 20070912
  Transmission Date: 20080115
  Serious: Yes (Other)
  Sender: FDA-Public Use
  Company Number: None

PATIENT
  Age: 25 Year
  Sex: Female
  Weight: 135.1719 kg

DRUGS (2)
  1. XANAX [Suspect]
     Indication: ANXIETY
     Dosage: 1 MG 1X A DAY PO
     Route: 048
     Dates: start: 20070821, end: 20070911
  2. ZOLOFT [Suspect]
     Indication: DEPRESSION
     Dosage: 100 MG 1X A DAY PO
     Route: 048
     Dates: start: 20070821, end: 20070911

REACTIONS (1)
  - ARTHRALGIA [None]
